FAERS Safety Report 7510087-5 (Version None)
Quarter: 2011Q2

REPORT INFORMATION
  Report Type: 
  Country: None (occurrence: None)
  Receive Date: 20110527
  Receipt Date: 20110516
  Transmission Date: 20111010
  Serious: Yes (Other)
  Sender: FDA-Public Use
  Company Number: NO-MYLANLABS-2011S1010393

PATIENT
  Age: 15 Year
  Sex: Female

DRUGS (6)
  1. METHOTREXATE [Suspect]
     Indication: BONE SARCOMA
     Dosage: 12 G/M2 AS A 4-H INFUSION IN EACH CYCLE
     Route: 065
  2. LEUCOVORIN CALCIUM [Concomitant]
     Dosage: STARTED 24H AFTER METHOTREXATE START; 11 DOSES PER CYCLE; RECEIVED 5 CYCLES
     Route: 065
  3. IFOSFAMIDE [Suspect]
     Indication: BONE SARCOMA
     Dosage: 2 G/M2/DAY FOR 5 DAYS AS A CONTINUOUS INFUSION
     Route: 065
  4. MESNA [Concomitant]
     Route: 065
  5. DOXORUBICIN HCL [Suspect]
     Indication: BONE SARCOMA
     Dosage: 75 MG/M2 AS A 4-H CONTINUOUS INFUSION IN EACH CYCLE
     Route: 065
  6. CISPLATIN [Suspect]
     Indication: BONE SARCOMA
     Dosage: 90 MG/M2 AS A 48-H CONTINUOUS INFUSION IN EACH CYCLE
     Route: 041

REACTIONS (1)
  - CARDIOTOXICITY [None]
